FAERS Safety Report 9447618 (Version 1)
Quarter: 2013Q3

REPORT INFORMATION
  Report Type: Spontaneous
  Country: US (occurrence: US)
  Receive Date: 20130808
  Receipt Date: 20130808
  Transmission Date: 20140515
  Serious: Yes (Death)
  Sender: FDA-Public Use
  Company Number: US-AMGEN-USASP2013055174

PATIENT
  Age: 69 Year
  Sex: 0

DRUGS (10)
  1. FILGRASTIM [Suspect]
     Indication: BURKITT^S LYMPHOMA
     Dosage: 5 MUG/KG, QD ON DAY 3 UNTIL POST NADIR
     Route: 058
  2. RITUXIMAB [Suspect]
     Indication: BURKITT^S LYMPHOMA
     Dosage: UNK UNK, 1 IN 1 D (DAY 1 AND 8)
     Route: 042
  3. CYCLOPHOSPHAMIDE [Suspect]
     Indication: BURKITT^S LYMPHOMA
     Dosage: UNK, (DAY 1, OVER 1 HOUR)
     Route: 042
  4. VINCRISTINE [Suspect]
     Indication: BURKITT^S LYMPHOMA
     Dosage: 2 MG CAPSULE, DAY 1 (1 IN 1 D)
     Route: 042
  5. METHOTREXATE [Suspect]
     Indication: BURKITT^S LYMPHOMA
     Dosage: 3 MG/M2, DAY 8 (OVER 2 HOURS)
     Route: 042
  6. LEUCOVORIN /00566702/ [Suspect]
     Indication: BURKITT^S LYMPHOMA
     Dosage: 25 MG/M2, 24 HOURS AFTER START OF METHOTREXATE, UNTIL CLEARANCE
     Route: 042
  7. CYTARABINE [Suspect]
     Indication: BURKITT^S LYMPHOMA
     Dosage: 100 MG, UNK
     Route: 037
  8. PREDNISONE [Suspect]
     Indication: BURKITT^S LYMPHOMA
     Dosage: 100 MG, UNK, (DAY 1-5)
     Route: 048
  9. MESNA [Suspect]
     Indication: BURKITT^S LYMPHOMA
     Dosage: 900 MG/M2, ON DAY 1, IN DIVIDED DOSES
     Route: 042
  10. HYDROCORTISONE [Suspect]
     Indication: BURKITT^S LYMPHOMA
     Dosage: 50 MG, UNK
     Route: 037

REACTIONS (2)
  - Multi-organ failure [Fatal]
  - Fungaemia [Fatal]
